FAERS Safety Report 18543402 (Version 1)
Quarter: 2020Q4

REPORT INFORMATION
  Report Type: Report from Study
  Country: JP (occurrence: JP)
  Receive Date: 20201124
  Receipt Date: 20201124
  Transmission Date: 20210114
  Serious: Yes (Other)
  Sender: FDA-Public Use
  Company Number: JP-TAKEDA-2020TUS046961

PATIENT
  Age: 58 Year
  Sex: Female

DRUGS (7)
  1. GOOFICE [Concomitant]
     Active Substance: ELOBIXIBAT
  2. CONTOMIN [CHLORPROMAZINE HIBENZATE] [Concomitant]
     Active Substance: CHLORPROMAZINE HIBENZATE
  3. INTUNIV [Suspect]
     Active Substance: GUANFACINE HYDROCHLORIDE
     Indication: ATTENTION DEFICIT HYPERACTIVITY DISORDER
     Dosage: 2 MILLIGRAM, QD
     Route: 048
     Dates: start: 20200930, end: 20201001
  4. FLUNITRAZEPAM [Concomitant]
     Active Substance: FLUNITRAZEPAM
  5. CERCINE [Concomitant]
     Active Substance: DIAZEPAM
  6. LENDORMIN [Concomitant]
     Active Substance: BROTIZOLAM
  7. CONCERTA [Concomitant]
     Active Substance: METHYLPHENIDATE HYDROCHLORIDE

REACTIONS (2)
  - Headache [Unknown]
  - Mental impairment [Unknown]

NARRATIVE: CASE EVENT DATE: 20200930
